FAERS Safety Report 8078657-6 (Version None)
Quarter: 2012Q1

REPORT INFORMATION
  Report Type: 
  Country: None (occurrence: None)
  Receive Date: 20120124
  Receipt Date: 20120117
  Transmission Date: 20120608
  Serious: Yes (Other)
  Sender: FDA-Public Use
  Company Number: AUR-APL-2011-01886

PATIENT
  Age: 64 Year
  Sex: Male
  Weight: 101 kg

DRUGS (21)
  1. PEPPERMINT OIL (MENTHA X PIPERITA OIL) [Concomitant]
  2. MEPERIDINE HCL [Concomitant]
  3. PROPRANOLOL [Concomitant]
  4. PERINDOPRIL ERBUMINE [Concomitant]
  5. IBUPROFEN [Concomitant]
  6. ACETAMINOPHEN [Concomitant]
  7. MORPHINE [Concomitant]
  8. RAMIPRIL [Suspect]
     Indication: CARDIAC DISORDER
     Dosage: 2.5 MG (2.5 MG,1 IN 1 D),ORAL
     Route: 048
  9. ASPIRIN [Concomitant]
  10. ACHILLEA MILLEFOLIUM [Concomitant]
  11. NEBIVOLOL HCL [Suspect]
     Indication: PRODUCT USED FOR UNKNOWN INDICATION
     Dosage: (5 MG), ORAL
     Route: 048
     Dates: start: 20100209
  12. ROSUVASTATIN [Concomitant]
  13. LACTOBACILLUS (LACTOBACILLUS ACIDOPHILUS) [Concomitant]
  14. TRAMADOL HCL [Concomitant]
  15. PSYLLIUM HUSK (PLANTAGO OVATA HUSK) [Concomitant]
  16. BISOPROLOL FUMARATE [Suspect]
     Indication: MYOCARDIAL ISCHAEMIA
     Dosage: 2.5 MG (2.5 MG,1 IN 1 D),ORAL
     Route: 048
     Dates: start: 20081101, end: 20100801
  17. BISOPROLOL FUMARATE [Suspect]
     Indication: ACUTE MYOCARDIAL INFARCTION
     Dosage: 2.5 MG (2.5 MG,1 IN 1 D),ORAL
     Route: 048
     Dates: start: 20081101, end: 20100801
  18. PERINDOPRIL ARGININE [Concomitant]
  19. CLOPIDOGREL [Concomitant]
  20. CLOBETASOL PROPIONATE [Concomitant]
  21. HYDROMOL [Concomitant]

REACTIONS (7)
  - JOINT EFFUSION [None]
  - OSTEOARTHRITIS [None]
  - GAIT DISTURBANCE [None]
  - CONDITION AGGRAVATED [None]
  - FALL [None]
  - PSORIASIS [None]
  - LIGAMENT DISORDER [None]
